FAERS Safety Report 12495984 (Version 1)
Quarter: 2016Q2

REPORT INFORMATION
  Report Type: Spontaneous
  Country: GR (occurrence: GR)
  Receive Date: 20160624
  Receipt Date: 20160624
  Transmission Date: 20160815
  Serious: Yes (Hospitalization, Other)
  Sender: FDA-Public Use
  Company Number: GR-009507513-1405GRC013402

PATIENT
  Age: 62 Year
  Sex: Female
  Weight: 125 kg

DRUGS (4)
  1. JANUMET [Suspect]
     Active Substance: METFORMIN HYDROCHLORIDE\SITAGLIPTIN PHOSPHATE
     Indication: TYPE 2 DIABETES MELLITUS
     Dosage: 2 TABLETS (DF) DAILY, 1 TABLET IN THE MORNING AND 1 TABLET AT NIGHT (BID)
     Route: 048
     Dates: start: 2012
  2. RASILEZ [Concomitant]
     Active Substance: ALISKIREN
     Dosage: 300 MG, UNK
  3. SOLOSA [Concomitant]
     Active Substance: GLIMEPIRIDE
     Dosage: 0.5 TABLET OF 4MG AT NIGHT
     Dates: start: 2004
  4. ACTOS [Concomitant]
     Active Substance: PIOGLITAZONE HYDROCHLORIDE
     Dosage: 1 TABLET (30 MG) IN THE MORNING
     Dates: start: 2010

REACTIONS (7)
  - Postoperative wound infection [Unknown]
  - Hypoglycaemia [Recovered/Resolved]
  - Diabetic vascular disorder [Unknown]
  - Hypoglycaemia [Unknown]
  - Oedema peripheral [Unknown]
  - Knee arthroplasty [Unknown]
  - Hypoglycaemia [Recovered/Resolved]

NARRATIVE: CASE EVENT DATE: 20140603
